FAERS Safety Report 21503357 (Version 2)
Quarter: 2022Q4

REPORT INFORMATION
  Report Type: Spontaneous
  Country: CL (occurrence: CL)
  Receive Date: 20221025
  Receipt Date: 20221213
  Transmission Date: 20230113
  Serious: Yes (Death, Other)
  Sender: FDA-Public Use
  Company Number: CL-PFIZER INC-PV202200088923

PATIENT
  Age: 83 Year
  Sex: Female
  Weight: 67 kg

DRUGS (1)
  1. XALKORI [Suspect]
     Active Substance: CRIZOTINIB
     Indication: Lung neoplasm malignant
     Dosage: EVERY 12 HOURS
     Route: 048
     Dates: start: 201906, end: 202102

REACTIONS (5)
  - Neoplasm progression [Fatal]
  - Oesophageal stenosis [Fatal]
  - Pleural effusion [Fatal]
  - Vomiting [Not Recovered/Not Resolved]
  - Nausea [Unknown]

NARRATIVE: CASE EVENT DATE: 20210401
